FAERS Safety Report 4623483-0 (Version None)
Quarter: 2005Q1

REPORT INFORMATION
  Report Type: 
  Country: None (occurrence: None)
  Receive Date: 20050330
  Receipt Date: 20050316
  Transmission Date: 20050727
  Serious: Yes (Hospitalization)
  Sender: FDA-Public Use
  Company Number: 20050316VANCO0098

PATIENT
  Age: 17 Year
  Sex: Female
  Weight: 17 kg

DRUGS (8)
  1. VANCOCIN ORAL (VANCOMYCIN HYDROCHLORIDE) (VANCOMYCIN HYDROCHLORIDE) [Suspect]
     Indication: CLOSTRIDIUM COLITIS
     Dosage: 500 MG (125 MG, FOUR TIMES DAILY), ORAL
     Route: 048
     Dates: start: 20040809, end: 20040812
  2. GABEXATE MESILATE (GABEXATE MESILATE) [Suspect]
     Indication: DISSEMINATED INTRAVASCULAR COAGULATION
     Dates: start: 20040811, end: 20040812
  3. IMIPENEM CILASTATIN (TIENAM/SWE/) [Concomitant]
  4. AMINOFLUID (AMINOFLUID) [Concomitant]
  5. METOCLOPRAMIDE [Concomitant]
  6. PANTOL (DEXPANTHENOL) [Concomitant]
  7. SODIUM CHLORIDE 0.9% [Concomitant]
  8. POTASSIUM CHLORIDE [Concomitant]

REACTIONS (4)
  - ALANINE AMINOTRANSFERASE INCREASED [None]
  - ASPARTATE AMINOTRANSFERASE INCREASED [None]
  - DISSEMINATED INTRAVASCULAR COAGULATION [None]
  - HEPATIC FUNCTION ABNORMAL [None]
